FAERS Safety Report 5278619-8 (Version None)
Quarter: 2007Q1

REPORT INFORMATION
  Report Type: 
  Country: None (occurrence: None)
  Receive Date: 20070328
  Receipt Date: 20070321
  Transmission Date: 20070707
  Serious: Yes (Hospitalization, Other)
  Sender: FDA-Public Use
  Company Number: NL-GLAXOSMITHKLINE-B0463911A

PATIENT
  Age: 31 Year
  Sex: Female
  Weight: 74 kg

DRUGS (1)
  1. FLIXONASE [Suspect]
     Indication: NASAL MUCOSAL DISORDER
     Dosage: 50MCG FOUR TIMES PER DAY
     Route: 045
     Dates: start: 19990101, end: 20060919

REACTIONS (2)
  - BREECH DELIVERY [None]
  - DRUG EXPOSURE DURING PREGNANCY [None]
